FAERS Safety Report 5701827-6 (Version None)
Quarter: 2008Q2

REPORT INFORMATION
  Report Type: 
  Country: None (occurrence: None)
  Receive Date: 20080411
  Receipt Date: 20080411
  Transmission Date: 20081010
  Serious: Yes (Death)
  Sender: FDA-Public Use
  Company Number: None

PATIENT
  Age: 61 Year
  Sex: Male
  Weight: 71 kg

DRUGS (2)
  1. HEPARIN [Suspect]
     Indication: CORONARY ARTERY BYPASS
     Dosage: 23,000 UNITS ONCE IV BOLUS; DURING COURSE OF CABG
     Route: 040
     Dates: start: 20071114, end: 20071114
  2. HEPARIN [Suspect]
     Indication: PULMONARY EMBOLISM
     Dosage: 5,000 UNIT/HEPARIN DRIP PRN BOLUS -3 DOSES IV DRIP
     Route: 041
     Dates: start: 20071116, end: 20071117

REACTIONS (6)
  - CARDIO-RESPIRATORY ARREST [None]
  - DELIRIUM [None]
  - HAEMODYNAMIC INSTABILITY [None]
  - HYPOTENSION [None]
  - HYPOXIA [None]
  - NAUSEA [None]
